FAERS Safety Report 4960467-7 (Version None)
Quarter: 2006Q2

REPORT INFORMATION
  Report Type: 
  Country: None (occurrence: None)
  Receive Date: 20060403
  Receipt Date: 20060324
  Transmission Date: 20061013
  Serious: Yes (Hospitalization)
  Sender: FDA-Public Use
  Company Number: GB-GLAXOSMITHKLINE-B0417994A

PATIENT
  Sex: Male

DRUGS (3)
  1. SEROXAT [Suspect]
     Route: 065
     Dates: start: 20001121
  2. PROPRANOLOL [Suspect]
     Route: 065
  3. DIAZEPAM [Suspect]
     Route: 065

REACTIONS (6)
  - AGGRESSION [None]
  - COMPLETED SUICIDE [None]
  - HALLUCINATION [None]
  - HYPERHIDROSIS [None]
  - OVERDOSE [None]
  - TREMOR [None]
